FAERS Safety Report 25195000 (Version 1)
Quarter: 2025Q2

REPORT INFORMATION
  Report Type: Report from Study
  Country: US (occurrence: US)
  Receive Date: 20250415
  Receipt Date: 20250415
  Transmission Date: 20250717
  Serious: Yes (Other)
  Sender: TAKEDA
  Company Number: US-TAKEDA-2023TUS080144

PATIENT
  Sex: Female

DRUGS (8)
  1. BRIGATINIB [Suspect]
     Active Substance: BRIGATINIB
     Indication: Lung neoplasm malignant
     Dosage: 90 MILLIGRAM, QD
     Dates: start: 20230604
  2. BRIGATINIB [Suspect]
     Active Substance: BRIGATINIB
     Dosage: 60 MILLIGRAM, QD
  3. ELIQUIS [Concomitant]
     Active Substance: APIXABAN
  4. FLONASE [Concomitant]
     Active Substance: FLUTICASONE PROPIONATE
  5. LEXAPRO [Concomitant]
     Active Substance: ESCITALOPRAM OXALATE
  6. NORCO [Concomitant]
     Active Substance: ACETAMINOPHEN\HYDROCODONE BITARTRATE
  7. PROMETHAZINE [Concomitant]
     Active Substance: PROMETHAZINE HYDROCHLORIDE
  8. ZOFRAN [Concomitant]
     Active Substance: ONDANSETRON HYDROCHLORIDE

REACTIONS (3)
  - Aortic thrombosis [Unknown]
  - Vomiting [Unknown]
  - Diarrhoea [Unknown]
